FAERS Safety Report 8131470-3 (Version None)
Quarter: 2012Q1

REPORT INFORMATION
  Report Type: 
  Country: None (occurrence: None)
  Receive Date: 20120213
  Receipt Date: 20120203
  Transmission Date: 20120608
  Serious: Yes (Other)
  Sender: FDA-Public Use
  Company Number: CA-JNJFOC-20120203422

PATIENT
  Age: 30 Year
  Sex: Female
  Weight: 80 kg

DRUGS (2)
  1. POLYSPORIN [Suspect]
     Indication: HORDEOLUM
     Dosage: PEA-SIZED AMOUNT, FOUR TIMES
     Route: 047
     Dates: start: 20120202
  2. POLYSPORIN [Suspect]
     Indication: EYE INFECTION
     Dosage: PEA-SIZED AMOUNT, FOUR TIMES
     Route: 047
     Dates: start: 20120202

REACTIONS (1)
  - VISUAL IMPAIRMENT [None]
